FAERS Safety Report 4548780-9 (Version None)
Quarter: 2005Q1

REPORT INFORMATION
  Report Type: 
  Country: None (occurrence: None)
  Receive Date: 20050107
  Receipt Date: 20050107
  Transmission Date: 20050727
  Serious: Yes (Life-Threatening)
  Sender: FDA-Public Use
  Company Number: None

PATIENT
  Age: 42 Year
  Sex: Male
  Weight: 63 kg

DRUGS (8)
  1. COMPOUNDING  PHENOL USP [Suspect]
     Indication: NERVE BLOCK
     Dosage: ONCE  OTHER
     Route: 050
     Dates: start: 20041220, end: 20041220
  2. ULTRAM [Concomitant]
  3. LIPITOR [Concomitant]
  4. PRANDIN [Concomitant]
  5. PHENERGAN [Concomitant]
  6. ZESTRIL [Concomitant]
  7. VICODIN [Concomitant]
  8. TIZANIDINE [Concomitant]

REACTIONS (4)
  - DIALYSIS [None]
  - MEDICATION ERROR [None]
  - RENAL FAILURE ACUTE [None]
  - RESUSCITATION [None]
